FAERS Safety Report 10241089 (Version 1)
Quarter: 2014Q2

REPORT INFORMATION
  Report Type: Spontaneous
  Country: CN (occurrence: CN)
  Receive Date: 20140617
  Receipt Date: 20140617
  Transmission Date: 20141212
  Serious: Yes (Hospitalization, Other)
  Sender: FDA-Public Use
  Company Number: CN-ELI_LILLY_AND_COMPANY-CN201406005270

PATIENT
  Sex: Male
  Weight: 70 kg

DRUGS (2)
  1. CECLOR [Suspect]
     Indication: OROPHARYNGEAL PAIN
     Dosage: 1 DF, BID
     Route: 048
     Dates: start: 20131013, end: 20131013
  2. CECLOR [Suspect]
     Indication: INFECTION

REACTIONS (1)
  - Drug hypersensitivity [Unknown]
